FAERS Safety Report 26182409 (Version 2)
Quarter: 2025Q4

REPORT INFORMATION
  Report Type: Spontaneous
  Country: EU (occurrence: EU)
  Receive Date: 20251221
  Receipt Date: 20251224
  Transmission Date: 20260117
  Serious: Yes (Disabling, Other)
  Sender: NOVARTIS
  Company Number: EU-002147023-NVSC2025DE165012

PATIENT
  Sex: Female
  Weight: 70 kg

DRUGS (1)
  1. KESIMPTA [Suspect]
     Active Substance: OFATUMUMAB
     Indication: Multiple sclerosis
     Dosage: 20 MG
     Route: 065
     Dates: start: 20250806, end: 20251101

REACTIONS (12)
  - Pain in extremity [Recovering/Resolving]
  - Fatigue [Recovering/Resolving]
  - Drug intolerance [Recovering/Resolving]
  - Asthma [Recovering/Resolving]
  - Presyncope [Recovering/Resolving]
  - Dyspnoea [Recovering/Resolving]
  - Pulmonary pain [Recovering/Resolving]
  - Adverse drug reaction [Not Recovered/Not Resolved]
  - Anxiety disorder [Recovering/Resolving]
  - Panic attack [Recovering/Resolving]
  - Gastrointestinal infection [Recovering/Resolving]
  - Asthenia [Recovering/Resolving]

NARRATIVE: CASE EVENT DATE: 20250101
